FAERS Safety Report 13791657 (Version 1)
Quarter: 2017Q3

REPORT INFORMATION
  Report Type: Spontaneous
  Country: US (occurrence: US)
  Receive Date: 20170725
  Receipt Date: 20170725
  Transmission Date: 20171127
  Serious: No
  Sender: FDA-Public Use
  Company Number: None

PATIENT
  Age: 63 Year
  Sex: Male

DRUGS (1)
  1. IMATINIB MES TAB 400MG [Suspect]
     Active Substance: IMATINIB

REACTIONS (4)
  - Condition aggravated [None]
  - Ocular hyperaemia [None]
  - Gastrooesophageal reflux disease [None]
  - Eye irritation [None]

NARRATIVE: CASE EVENT DATE: 20170525
